FAERS Safety Report 5150363-7 (Version None)
Quarter: 2006Q4

REPORT INFORMATION
  Report Type: 
  Country: None (occurrence: None)
  Receive Date: 20061110
  Receipt Date: 20061110
  Transmission Date: 20070319
  Serious: No
  Sender: FDA-Public Use
  Company Number: None

PATIENT
  Age: 51 Year
  Sex: Female
  Weight: 72.5755 kg

DRUGS (1)
  1. EQUATE, EXTRA STRENGTH PAIN 500DAYS  EQUATE, WALMART BRAND [Suspect]
     Dosage: 1000MGS PRN BUCCAL
     Route: 002
     Dates: start: 20060901, end: 20061105

REACTIONS (3)
  - LETHARGY [None]
  - PAIN [None]
  - POOR QUALITY DRUG ADMINISTERED [None]
